FAERS Safety Report 7347136-3 (Version None)
Quarter: 2011Q1

REPORT INFORMATION
  Report Type: 
  Country: None (occurrence: None)
  Receive Date: 20110311
  Receipt Date: 20110228
  Transmission Date: 20110831
  Serious: Yes (Other)
  Sender: FDA-Public Use
  Company Number: PHHY2011IT17069

PATIENT
  Sex: Female

DRUGS (3)
  1. ATENOLOL [Suspect]
     Indication: PALPITATIONS
     Dosage: 25 MG, UNK
     Dates: start: 20101014, end: 20101014
  2. SULAMID [Concomitant]
  3. EUTIROX [Concomitant]
     Indication: HYPERTHYROIDISM
     Dosage: 75 UG, UNK
     Route: 048

REACTIONS (3)
  - TREMOR [None]
  - CHILLS [None]
  - DIZZINESS [None]
